FAERS Safety Report 7824863-2 (Version None)
Quarter: 2011Q4

REPORT INFORMATION
  Report Type: 
  Country: None (occurrence: None)
  Receive Date: 20111019
  Receipt Date: 20110215
  Transmission Date: 20120403
  Serious: No
  Sender: FDA-Public Use
  Company Number: US-BRISTOL-MYERS SQUIBB COMPANY-15552441

PATIENT
  Age: 46 Year
  Sex: Male

DRUGS (1)
  1. AVALIDE [Suspect]

REACTIONS (3)
  - HYPERTENSION [None]
  - RENAL PAIN [None]
  - URINE ABNORMALITY [None]
